FAERS Safety Report 5387154-8 (Version None)
Quarter: 2007Q3

REPORT INFORMATION
  Report Type: 
  Country: None (occurrence: None)
  Receive Date: 20070711
  Receipt Date: 20070705
  Transmission Date: 20080115
  Serious: Yes (Life-Threatening, Hospitalization)
  Sender: FDA-Public Use
  Company Number: 232516K07USA

PATIENT
  Age: 34 Year
  Sex: Female

DRUGS (3)
  1. REBIF [Suspect]
     Indication: MULTIPLE SCLEROSIS
     Dosage: 44 MCG, 3 IN 7 DAYS, SUBCUTANEOUS
     Route: 058
     Dates: start: 20060925, end: 20070202
  2. MOTRIN [Concomitant]
  3. ANTIDEPRESSANTS                (ANTIDEPRESSANTS) [Concomitant]

REACTIONS (2)
  - AMNESIA [None]
  - ENCEPHALITIS HERPES [None]
